FAERS Safety Report 10399742 (Version 1)
Quarter: 2014Q1

REPORT INFORMATION
  Report Type: Spontaneous
  Country: US (occurrence: None)
  Receive Date: 20130815
  Receipt Date: 20130815
  Transmission Date: 20141002
  Serious: Yes (Hospitalization, Other)
  Sender: FDA-Public Use
  Company Number: ADR-2012-00051

PATIENT
  Sex: 0

DRUGS (1)
  1. BACLOFEN INTRATHECAL (BACLOFEN INJECTION) [Suspect]
     Indication: MUSCLE SPASTICITY
     Dosage: UNK

REACTIONS (5)
  - Therapeutic response decreased [None]
  - Musculoskeletal stiffness [None]
  - Hypertonia [None]
  - Muscle spasticity [None]
  - Post lumbar puncture syndrome [None]
